FAERS Safety Report 8143868-8 (Version None)
Quarter: 2012Q1

REPORT INFORMATION
  Report Type: 
  Country: None (occurrence: None)
  Receive Date: 20120217
  Receipt Date: 20120214
  Transmission Date: 20120608
  Serious: Yes (Other)
  Sender: FDA-Public Use
  Company Number: CA-PFIZER INC-2012007311

PATIENT
  Age: 55 Year
  Sex: Female
  Weight: 56.689 kg

DRUGS (3)
  1. MAGNESIUM [Concomitant]
     Indication: ARTHRALGIA
     Dosage: UNK
  2. VARENICLINE TARTRATE [Suspect]
     Dosage: 2 MG, 2X/DAY
     Dates: end: 20120115
  3. VARENICLINE TARTRATE [Suspect]
     Indication: SMOKING CESSATION THERAPY
     Dosage: 1 MG, 2X/DAY
     Dates: start: 20111215

REACTIONS (8)
  - FATIGUE [None]
  - POOR PERIPHERAL CIRCULATION [None]
  - DRUG INEFFECTIVE [None]
  - DISTURBANCE IN ATTENTION [None]
  - AMNESIA [None]
  - PANIC ATTACK [None]
  - ATTENTION DEFICIT/HYPERACTIVITY DISORDER [None]
  - DYSLEXIA [None]
